FAERS Safety Report 25161203 (Version 1)
Quarter: 2025Q2

REPORT INFORMATION
  Report Type: Spontaneous
  Country: GB (occurrence: GB)
  Receive Date: 20250404
  Receipt Date: 20250404
  Transmission Date: 20250716
  Serious: Yes (Other)
  Sender: NOVARTIS
  Company Number: GB-002147023-NVSC2025GB054650

PATIENT

DRUGS (1)
  1. KESIMPTA [Suspect]
     Active Substance: OFATUMUMAB
     Indication: Product used for unknown indication
     Route: 065

REACTIONS (2)
  - Expanded disability status scale score increased [Unknown]
  - Mass [Unknown]

NARRATIVE: CASE EVENT DATE: 20250401
